FAERS Safety Report 26174997 (Version 1)
Quarter: 2025Q4

REPORT INFORMATION
  Report Type: Report from Study
  Country: TH (occurrence: TH)
  Receive Date: 20251218
  Receipt Date: 20251218
  Transmission Date: 20260118
  Serious: Yes (Death, Other)
  Sender: PFIZER
  Company Number: TH-TAKEDA-2025TUS113878

PATIENT
  Age: 63 Year
  Sex: Female

DRUGS (1)
  1. ADCETRIS [Suspect]
     Active Substance: BRENTUXIMAB VEDOTIN
     Indication: Anaplastic large cell lymphoma T- and null-cell types refractory
     Dosage: 75 MILLIGRAM, Q3WEEKS
     Route: 042
     Dates: start: 20250429

REACTIONS (1)
  - Death [Fatal]

NARRATIVE: CASE EVENT DATE: 20251204
